FAERS Safety Report 9129699 (Version 2)
Quarter: 2013Q1

REPORT INFORMATION
  Report Type: Spontaneous
  Country: US (occurrence: US)
  Receive Date: 20130125
  Receipt Date: 20130305
  Transmission Date: 20140127
  Serious: Yes (Hospitalization, Other)
  Sender: FDA-Public Use
  Company Number: US-TARO-2013P1000708

PATIENT
  Age: 8 Year
  Sex: Male
  Weight: 31.75 kg

DRUGS (2)
  1. LORATADINE [Suspect]
     Route: 048
     Dates: start: 2008, end: 20121006
  2. LORATADINE [Suspect]
     Dates: start: 20121008

REACTIONS (9)
  - Vomiting [Recovered/Resolved]
  - Decreased appetite [Recovered/Resolved]
  - Weight decreased [Recovered/Resolved]
  - Constipation [Recovered/Resolved]
  - Viral infection [Recovered/Resolved]
  - Abdominal pain [Unknown]
  - Nasal congestion [Unknown]
  - Headache [Unknown]
  - Urine analysis abnormal [Unknown]
